FAERS Safety Report 6636344-2 (Version None)
Quarter: 2010Q1

REPORT INFORMATION
  Report Type: 
  Country: None (occurrence: None)
  Receive Date: 20100311
  Receipt Date: 20100226
  Transmission Date: 20100710
  Serious: Yes (Hospitalization, Other)
  Sender: FDA-Public Use
  Company Number: 238692K09USA

PATIENT
  Age: 52 Year
  Sex: Female
  Weight: 93 kg

DRUGS (11)
  1. REBIF [Suspect]
     Indication: MULTIPLE SCLEROSIS
     Dosage: 44 MCG, 3 IN 1 WEEKS, SUBCUTANEOUS
     Route: 058
     Dates: start: 20090625
  2. NEURONTIN [Suspect]
     Indication: NEUROPATHY PERIPHERAL
     Dates: start: 20000101, end: 20090730
  3. NEURONTIN [Suspect]
     Indication: NEUROPATHY PERIPHERAL
     Dates: start: 20090801
  4. KLONOPIN [Suspect]
     Indication: TREMOR
     Dates: end: 20090730
  5. KLONOPIN [Suspect]
     Indication: TREMOR
     Dates: start: 20090801
  6. EFFEXOR [Suspect]
     Indication: HOT FLUSH
     Dates: end: 20090730
  7. EFFEXOR [Suspect]
     Indication: HOT FLUSH
     Dates: start: 20090801
  8. TRAMADOL HCL [Suspect]
     Indication: PAIN
     Dates: end: 20090730
  9. TRAMADOL HCL [Suspect]
     Indication: PAIN
     Dates: start: 20090801
  10. TRAZODONE HCL [Suspect]
     Indication: INSOMNIA
     Dosage: 1 IN 1 DAYS; 1 IN 1 DAYS
     Dates: end: 20090730
  11. TRAZODONE HCL [Suspect]
     Indication: INSOMNIA
     Dosage: 1 IN 1 DAYS; 1 IN 1 DAYS
     Dates: start: 20090801

REACTIONS (6)
  - ACCIDENTAL OVERDOSE [None]
  - CONVULSION [None]
  - DRUG WITHDRAWAL SYNDROME [None]
  - FEELING OF BODY TEMPERATURE CHANGE [None]
  - LOSS OF CONSCIOUSNESS [None]
  - RETCHING [None]
